FAERS Safety Report 19965663 (Version 1)
Quarter: 2021Q4

REPORT INFORMATION
  Report Type: Spontaneous
  Country: US (occurrence: US)
  Receive Date: 20211018
  Receipt Date: 20211018
  Transmission Date: 20220303
  Serious: No
  Sender: FDA-Public Use
  Company Number: US-PFIZER INC-2021467714

PATIENT
  Age: 71 Year
  Sex: Female

DRUGS (1)
  1. IBRANCE [Suspect]
     Active Substance: PALBOCICLIB
     Indication: Breast neoplasm
     Dosage: 125 MG, CYCLIC (1 TAB FOR 21 DAYS OF EVERY 28 DAY CYCLE)
     Dates: start: 20210129

REACTIONS (2)
  - Product dose omission issue [Unknown]
  - Confusional state [Unknown]
